FAERS Safety Report 7788303-4 (Version None)
Quarter: 2011Q3

REPORT INFORMATION
  Report Type: 
  Country: None (occurrence: None)
  Receive Date: 20110927
  Receipt Date: 20110914
  Transmission Date: 20111222
  Serious: Yes (Hospitalization, Other)
  Sender: FDA-Public Use
  Company Number: 1000021418

PATIENT
  Age: 20 Year
  Sex: Female
  Weight: 50 kg

DRUGS (4)
  1. TEMESTA (LORAZEPAM)(LORAZEPAM) [Concomitant]
  2. ESCITALOPRAM [Suspect]
     Indication: PSYCHOTIC DISORDER
     Dosage: 20 MG (20 MG, 1 IN 1 D), ORAL
     Route: 048
     Dates: start: 20101201
  3. SOLIAN (AMISULPRIDE)(AMISULPRIDE) [Concomitant]
  4. JANUMET [Suspect]
     Dosage: OVERDOSE: 180 TABS ONCE, ORAL
     Route: 048
     Dates: start: 20110510, end: 20110510

REACTIONS (6)
  - INTENTIONAL OVERDOSE [None]
  - METABOLIC ACIDOSIS [None]
  - CONTINUOUS HAEMODIAFILTRATION [None]
  - VOMITING [None]
  - SUICIDE ATTEMPT [None]
  - BLOOD LACTIC ACID INCREASED [None]
